FAERS Safety Report 6344673-5 (Version None)
Quarter: 2009Q3

REPORT INFORMATION
  Report Type: 
  Country: None (occurrence: None)
  Receive Date: 20090821
  Receipt Date: 20090507
  Transmission Date: 20100115
  Serious: No
  Sender: FDA-Public Use
  Company Number: 8045893

PATIENT
  Age: 61 Year
  Sex: Female
  Weight: 65.7 kg

DRUGS (5)
  1. CIMZIA [Suspect]
     Indication: CROHN'S DISEASE
     Dosage: 400 MG SC
     Route: 058
     Dates: start: 20080801
  2. ZOCOR [Concomitant]
  3. EVISTA [Concomitant]
  4. IMURAN [Concomitant]
  5. DIAMOX SRC [Concomitant]

REACTIONS (2)
  - OPEN WOUND [None]
  - RASH PRURITIC [None]
